FAERS Safety Report 13961501 (Version 2)
Quarter: 2017Q4

REPORT INFORMATION
  Report Type: Spontaneous
  Country: BR (occurrence: BR)
  Receive Date: 20170912
  Receipt Date: 20171106
  Transmission Date: 20180320
  Serious: Yes (Other)
  Sender: FDA-Public Use
  Company Number: BR-SA-2017SA166136

PATIENT
  Age: 53 Year
  Sex: Male
  Weight: 73.5 kg

DRUGS (7)
  1. METAMIZOLE SODIUM [Concomitant]
     Active Substance: METAMIZOLE SODIUM
     Dosage: STRENGTH:500MG/ML
     Route: 042
     Dates: start: 20170731
  2. THYMOGLOBULINE [Suspect]
     Active Substance: LAPINE T-LYMPHOCYTE IMMUNE GLOBULIN
     Indication: IMMUNOSUPPRESSION
     Dosage: INFUSION
     Route: 042
     Dates: start: 20170825, end: 20170826
  3. METAMIZOLE SODIUM [Concomitant]
     Active Substance: METAMIZOLE SODIUM
     Dosage: STRENGTH:500MG/ML
     Route: 042
     Dates: start: 20170825, end: 20170826
  4. HYDROCORTISONE. [Concomitant]
     Active Substance: HYDROCORTISONE
     Dosage: STRENGTH: 100 MG
     Route: 042
     Dates: start: 20170825, end: 20170825
  5. HYDROCORTISONE. [Concomitant]
     Active Substance: HYDROCORTISONE
     Dosage: STRENGTH: 100 MG
     Route: 042
     Dates: start: 20170731
  6. RANITIDINE. [Concomitant]
     Active Substance: RANITIDINE
     Dosage: STRENGTH:25MG/ML
     Route: 065
     Dates: start: 20170825, end: 20170825
  7. CEFAZOLIN [Concomitant]
     Active Substance: CEFAZOLIN
     Route: 065
     Dates: start: 20170825, end: 20170826

REACTIONS (3)
  - Tremor [Recovered/Resolved]
  - Chills [Recovered/Resolved]
  - Hypotension [Recovered/Resolved]

NARRATIVE: CASE EVENT DATE: 20170825
